FAERS Safety Report 24926003 (Version 2)
Quarter: 2025Q2

REPORT INFORMATION
  Report Type: Spontaneous
  Country: GR (occurrence: GR)
  Receive Date: 20250205
  Receipt Date: 20250401
  Transmission Date: 20250717
  Serious: Yes (Death, Hospitalization)
  Sender: NOVARTIS
  Company Number: GR-002147023-NVSC2025GR018177

PATIENT
  Age: 45 Year
  Sex: Female

DRUGS (2)
  1. SECUKINUMAB [Suspect]
     Active Substance: SECUKINUMAB
     Indication: Hidradenitis
     Route: 058
     Dates: start: 202407, end: 202412
  2. OZEMPIC [Suspect]
     Active Substance: SEMAGLUTIDE
     Indication: Hidradenitis
     Route: 058
     Dates: end: 202412

REACTIONS (6)
  - Death [Fatal]
  - Sepsis [Fatal]
  - Dysuria [Unknown]
  - Hidradenitis [Unknown]
  - Condition aggravated [Unknown]
  - Mental disorder [Unknown]

NARRATIVE: CASE EVENT DATE: 20241201
